FAERS Safety Report 5075032-3 (Version None)
Quarter: 2006Q3

REPORT INFORMATION
  Report Type: 
  Country: None (occurrence: None)
  Receive Date: 20060809
  Receipt Date: 20050914
  Transmission Date: 20061208
  Serious: No
  Sender: FDA-Public Use
  Company Number: US-AMGEN-KDL150495

PATIENT
  Age: 51 Year
  Sex: Female
  Weight: 72.6 kg

DRUGS (5)
  1. PROCRIT [Suspect]
     Indication: ANAEMIA
  2. FOLIC ACID [Concomitant]
  3. DIOVAN [Concomitant]
  4. FUROSEMIDE [Concomitant]
  5. PLATELETS [Concomitant]

REACTIONS (2)
  - MALAISE [None]
  - PAIN [None]
